FAERS Safety Report 24018562 (Version 1)
Quarter: 2024Q2

REPORT INFORMATION
  Report Type: Spontaneous
  Country: US (occurrence: US)
  Receive Date: 20240627
  Receipt Date: 20240627
  Transmission Date: 20240716
  Serious: No
  Sender: FDA-Public Use
  Company Number: US-CHEPLA-2024007611

PATIENT
  Age: 64 Year
  Sex: Male

DRUGS (17)
  1. MYCOPHENOLIC ACID [Suspect]
     Active Substance: MYCOPHENOLIC ACID
     Indication: Immunosuppression
     Dosage: BID
     Route: 065
  2. VALGANCICLOVIR [Suspect]
     Active Substance: VALGANCICLOVIR
     Indication: Antiviral prophylaxis
     Route: 065
  3. VALGANCICLOVIR [Suspect]
     Active Substance: VALGANCICLOVIR
     Route: 065
  4. GANCICLOVIR [Suspect]
     Active Substance: GANCICLOVIR
     Indication: Antiviral prophylaxis
     Route: 065
  5. GANCICLOVIR [Suspect]
     Active Substance: GANCICLOVIR
     Dosage: Q12H
     Route: 065
  6. BASILIXIMAB [Suspect]
     Active Substance: BASILIXIMAB
     Indication: Immunosuppression
     Route: 065
  7. METHYLPREDNISOLONE [Suspect]
     Active Substance: METHYLPREDNISOLONE
     Indication: Immunosuppression
     Route: 065
  8. TACROLIMUS [Suspect]
     Active Substance: TACROLIMUS
     Indication: Immunosuppression
     Dosage: GOAL OF 8-12 NG/ML
     Route: 065
  9. TACROLIMUS [Suspect]
     Active Substance: TACROLIMUS
     Dosage: REDUCED TO 8-10 NG/ML
     Route: 065
  10. TACROLIMUS [Suspect]
     Active Substance: TACROLIMUS
     Dosage: REDUCED (8- 10 TO 4-6 NG/ML)
     Route: 065
  11. PREDNISONE [Suspect]
     Active Substance: PREDNISONE
     Indication: Immunosuppression
     Dosage: TAPER TO 5 MG DAILY
     Route: 065
  12. SIROLIMUS [Suspect]
     Active Substance: SIROLIMUS
     Indication: Immunosuppression
     Dosage: (TROUGH GOAL 4-6 NG/ML)
     Route: 065
  13. FOSCARNET [Concomitant]
     Active Substance: FOSCARNET
     Dosage: Q12H
     Route: 065
  14. MARIBAVIR [Concomitant]
     Active Substance: MARIBAVIR
     Indication: Dysgeusia
     Dosage: BID
     Route: 065
  15. MARIBAVIR [Concomitant]
     Active Substance: MARIBAVIR
     Indication: Nausea
  16. MARIBAVIR [Concomitant]
     Active Substance: MARIBAVIR
     Indication: Weight decreased
  17. MARIBAVIR [Concomitant]
     Active Substance: MARIBAVIR
     Indication: Diarrhoea

REACTIONS (5)
  - Drug resistance [Unknown]
  - Drug ineffective [Unknown]
  - Cytomegalovirus viraemia [Unknown]
  - Leukopenia [Unknown]
  - Drug intolerance [Unknown]
